FAERS Safety Report 7512063-5 (Version None)
Quarter: 2011Q2

REPORT INFORMATION
  Report Type: 
  Country: None (occurrence: None)
  Receive Date: 20110531
  Receipt Date: 20110517
  Transmission Date: 20111010
  Serious: Yes (Hospitalization, Other)
  Sender: FDA-Public Use
  Company Number: US-BAYER-2011-023042

PATIENT
  Sex: Female

DRUGS (6)
  1. NAPROXEN (ALEVE) [Concomitant]
  2. BETASERON [Suspect]
     Indication: MULTIPLE SCLEROSIS
     Dosage: DAILY DOSE 4 MIU
     Route: 058
     Dates: start: 20101217, end: 20110310
  3. BETASERON [Suspect]
     Dosage: 4 MIU, QOD
     Route: 058
     Dates: start: 20110322
  4. INSULIN [INSULIN] [Concomitant]
  5. BACLOFEN [Concomitant]
     Indication: MUSCULOSKELETAL STIFFNESS
  6. VITAMIN D [Concomitant]

REACTIONS (12)
  - DIZZINESS [None]
  - MUSCULOSKELETAL STIFFNESS [None]
  - VOMITING [None]
  - PAIN [None]
  - THYROID FUNCTION TEST ABNORMAL [None]
  - FEELING ABNORMAL [None]
  - ABDOMINAL PAIN UPPER [None]
  - PALPITATIONS [None]
  - NIGHT SWEATS [None]
  - DEHYDRATION [None]
  - BALANCE DISORDER [None]
  - DIARRHOEA [None]
